FAERS Safety Report 7424697-7 (Version None)
Quarter: 2011Q2

REPORT INFORMATION
  Report Type: 
  Country: None (occurrence: None)
  Receive Date: 20110419
  Receipt Date: 20110419
  Transmission Date: 20111010
  Serious: Yes (Life-Threatening)
  Sender: FDA-Public Use
  Company Number: US-B.I. PHARMACEUTICALS,INC./RIDGEFIELD-2011-BP-08006BP

PATIENT
  Age: 59 Year
  Sex: Female
  Weight: 65.8 kg

DRUGS (6)
  1. LIVOL [Concomitant]
     Dosage: 2 MG
  2. METFORMIN HCL [Concomitant]
     Dosage: 500 MG
  3. AMIODARONE HCL [Concomitant]
     Dosage: 200 MG
  4. DILTIAZEM CD [Concomitant]
     Dosage: 120 MG
  5. LOVEZE [Concomitant]
     Dosage: 2 G
  6. PRADAXA [Suspect]
     Dosage: 300 MG
     Dates: start: 20101117, end: 20110314

REACTIONS (1)
  - ACUTE MYOCARDIAL INFARCTION [None]
